FAERS Safety Report 15077212 (Version 7)
Quarter: 2019Q4

REPORT INFORMATION
  Report Type: Spontaneous
  Country: US (occurrence: US)
  Receive Date: 20180627
  Receipt Date: 20191017
  Transmission Date: 20200122
  Serious: Yes (Death, Life-Threatening, Hospitalization, Other)
  Sender: FDA-Public Use
  Company Number: US-ACTELION-A-NJ2018-174133

PATIENT
  Age: 71 Year
  Sex: Female

DRUGS (10)
  1. LASIX [Concomitant]
     Active Substance: FUROSEMIDE
     Dosage: 40 MG, QD
     Route: 048
  2. ZOFRAN [Concomitant]
     Active Substance: ONDANSETRON HYDROCHLORIDE
     Indication: NAUSEA
     Dosage: 4 MG, Q8HRS, PRN
     Route: 048
  3. CHOLECALCIFEROL [Concomitant]
     Active Substance: CHOLECALCIFEROL
     Dosage: 2000 U, QD
     Route: 048
  4. TPN [Concomitant]
     Active Substance: AMINO ACIDS\DEXTROSE\ELECTROLYTES NOS\SOYBEAN OIL
     Dosage: UNK
     Dates: start: 201412
  5. REMODULIN [Suspect]
     Active Substance: TREPROSTINIL
     Dosage: UNK
     Route: 042
  6. NITROGLYCERINE [Concomitant]
     Active Substance: NITROGLYCERIN
  7. OPSUMIT [Suspect]
     Active Substance: MACITENTAN
     Indication: PULMONARY HYPERTENSION
     Dosage: 10 MG, QD
     Route: 048
     Dates: start: 20180413
  8. REMODULIN [Suspect]
     Active Substance: TREPROSTINIL
     Indication: RENAL FAILURE
     Dosage: 22.9 NG/KG, PER MIN
     Route: 042
  9. REMODULIN [Suspect]
     Active Substance: TREPROSTINIL
     Dosage: 3.75 NG/KG, PER MIN
     Route: 042
  10. ADCIRCA [Concomitant]
     Active Substance: TADALAFIL
     Dosage: 40 MG, QD
     Route: 065
     Dates: start: 20170824

REACTIONS (21)
  - Concomitant disease progression [Recovered/Resolved]
  - Vomiting [Unknown]
  - Pulmonary arterial pressure increased [Unknown]
  - Musculoskeletal pain [Recovered/Resolved]
  - Acute myocardial infarction [Unknown]
  - Angina pectoris [Unknown]
  - Nausea [Not Recovered/Not Resolved]
  - Anaemia [Recovered/Resolved]
  - Catheter management [Unknown]
  - Hyperkalaemia [Not Recovered/Not Resolved]
  - Hypotension [Unknown]
  - Cor pulmonale [Unknown]
  - Pleural effusion [Unknown]
  - Hypoxia [Unknown]
  - Myocardial infarction [Not Recovered/Not Resolved]
  - Transfusion [Recovered/Resolved]
  - Troponin [Unknown]
  - Chest pain [Recovered/Resolved]
  - Discoloured vomit [Unknown]
  - Disease complication [Fatal]
  - Acute kidney injury [Recovered/Resolved]

NARRATIVE: CASE EVENT DATE: 201806
